FAERS Safety Report 24391718 (Version 1)
Quarter: 2024Q4

REPORT INFORMATION
  Report Type: Spontaneous
  Country: JP (occurrence: JP)
  Receive Date: 20241003
  Receipt Date: 20241003
  Transmission Date: 20250115
  Serious: Yes (Death, Other)
  Sender: ASTELLAS
  Company Number: JP-ASTELLAS-2024-AER-010301

PATIENT
  Age: 55 Year
  Sex: Male

DRUGS (1)
  1. CRESEMBA [Suspect]
     Active Substance: ISAVUCONAZONIUM SULFATE
     Indication: Bronchopulmonary aspergillosis
     Route: 042

REACTIONS (2)
  - Bronchopulmonary aspergillosis [Fatal]
  - Disease progression [Fatal]
